FAERS Safety Report 7753552-8 (Version None)
Quarter: 2011Q3

REPORT INFORMATION
  Report Type: 
  Country: None (occurrence: None)
  Receive Date: 20110915
  Receipt Date: 20110908
  Transmission Date: 20111222
  Serious: Yes (Hospitalization)
  Sender: FDA-Public Use
  Company Number: US-GLAXOSMITHKLINE-A0730931A

PATIENT
  Age: 41 Year
  Sex: Female
  Weight: 102.3 kg

DRUGS (5)
  1. XANAX [Concomitant]
  2. AVANDIA [Suspect]
     Indication: TYPE 2 DIABETES MELLITUS
     Dosage: 8MG PER DAY
     Route: 048
     Dates: start: 20020801, end: 20071101
  3. DEPO-PROVERA [Concomitant]
     Dates: start: 20050101, end: 20060124
  4. LIPITOR [Concomitant]
     Dates: start: 20060430, end: 20060726
  5. CLARITIN [Concomitant]

REACTIONS (3)
  - MYOCARDIAL INFARCTION [None]
  - VENTRICULAR FIBRILLATION [None]
  - CARDIAC ARREST [None]
